FAERS Safety Report 13008908 (Version 1)
Quarter: 2016Q4

REPORT INFORMATION
  Report Type: Spontaneous
  Country: CH (occurrence: CH)
  Receive Date: 20161208
  Receipt Date: 20161208
  Transmission Date: 20170207
  Serious: Yes (Hospitalization)
  Sender: FDA-Public Use
  Company Number: CH-BAYER-2016-227648

PATIENT
  Age: 36 Year
  Sex: Male

DRUGS (12)
  1. RENITEN [Concomitant]
     Active Substance: ENALAPRIL
  2. ASPIRIN CARDIO 100 MG [Suspect]
     Active Substance: ASPIRIN
     Dosage: 100 MG, QD
     Route: 048
  3. SANDIMMUN NEORAL [Concomitant]
     Active Substance: CYCLOSPORINE
  4. TOREM [Concomitant]
     Active Substance: TORSEMIDE
  5. ACIDUM FOLICUM [Concomitant]
     Active Substance: FOLIC ACID
  6. MARCOUMAR [Interacting]
     Active Substance: PHENPROCOUMON
     Indication: EMBOLISM
     Dosage: 1 DF, UNK
     Route: 048
     Dates: end: 20161104
  7. SELIPRAN [Concomitant]
     Active Substance: PRAVASTATIN SODIUM
  8. PANTOZOL [Concomitant]
     Active Substance: PANTOPRAZOLE SODIUM
  9. PLAVIX [Interacting]
     Active Substance: CLOPIDOGREL BISULFATE
     Indication: CORONARY ARTERIAL STENT INSERTION
     Dosage: 75 MG, QD
     Route: 048
     Dates: start: 20161104
  10. CERTICAN [Concomitant]
     Active Substance: EVEROLIMUS
  11. PREDNISON [Concomitant]
     Active Substance: PREDNISONE
  12. ZYLORIC [Concomitant]
     Active Substance: ALLOPURINOL

REACTIONS (2)
  - Bladder tamponade [Recovered/Resolved]
  - Haematuria [Recovered/Resolved]

NARRATIVE: CASE EVENT DATE: 20161112
